FAERS Safety Report 5471513-9 (Version None)
Quarter: 2007Q3

REPORT INFORMATION
  Report Type: 
  Country: None (occurrence: None)
  Receive Date: 20070928
  Receipt Date: 20061207
  Transmission Date: 20080115
  Serious: No
  Sender: FDA-Public Use
  Company Number: US-BRISTOL-MYERS SQUIBB COMPANY-13605431

PATIENT
  Sex: Female

DRUGS (1)
  1. DEFINITY [Suspect]
     Indication: ECHOCARDIOGRAM
     Dosage: WAS GIVIN 1.3CC OF DEFINITY WAS DILUTED IN 8.7CC OF SALINE TO = TOTAL OF 10CC

REACTIONS (3)
  - BACK PAIN [None]
  - HEADACHE [None]
  - NECK PAIN [None]
